FAERS Safety Report 8012061-1 (Version None)
Quarter: 2011Q4

REPORT INFORMATION
  Report Type: 
  Country: None (occurrence: None)
  Receive Date: 20111228
  Receipt Date: 20111214
  Transmission Date: 20120403
  Serious: Yes (Hospitalization)
  Sender: FDA-Public Use
  Company Number: IT-MYLANLABS-2011S1025950

PATIENT
  Age: 32 Year
  Sex: Female

DRUGS (3)
  1. AZATHIOPRINE [Suspect]
     Indication: CROHN'S DISEASE
     Dosage: 2.2 MG/KG/DAY
     Route: 065
  2. INFLIXIMAB [Suspect]
     Indication: CROHN'S DISEASE
     Dosage: 5 MG/KG, THREE INFUSIONS
     Route: 065
  3. PREDNISONE TAB [Concomitant]
     Indication: CROHN'S DISEASE
     Route: 065

REACTIONS (2)
  - PNEUMONIA CYTOMEGALOVIRAL [None]
  - HISTIOCYTOSIS HAEMATOPHAGIC [None]
